FAERS Safety Report 16159530 (Version 8)
Quarter: 2022Q2

REPORT INFORMATION
  Report Type: Report from Study
  Country: DE (occurrence: DE)
  Receive Date: 20190404
  Receipt Date: 20220514
  Transmission Date: 20220721
  Serious: Yes (Life-Threatening, Hospitalization, Other)
  Sender: FDA-Public Use
  Company Number: DE-ABBVIE-19P-062-2687503-00

PATIENT
  Age: 52 Year
  Sex: Male
  Weight: 77 kg

DRUGS (15)
  1. HUMIRA [Suspect]
     Active Substance: ADALIMUMAB
     Indication: Colitis ulcerative
     Route: 058
     Dates: start: 20160525, end: 20161021
  2. HUMIRA [Suspect]
     Active Substance: ADALIMUMAB
     Route: 058
     Dates: start: 20161021, end: 20161122
  3. HUMIRA [Suspect]
     Active Substance: ADALIMUMAB
     Route: 058
     Dates: start: 20161122, end: 20170705
  4. SALOFALK [Concomitant]
     Indication: Colitis ulcerative
     Route: 048
     Dates: start: 201604
  5. SALOFALK [Concomitant]
     Route: 054
     Dates: start: 201706
  6. PANTOPRAZOLE SODIUM [Concomitant]
     Active Substance: PANTOPRAZOLE SODIUM
     Indication: Colitis ulcerative
     Route: 048
     Dates: start: 201607, end: 201610
  7. PANTOPRAZOLE SODIUM [Concomitant]
     Active Substance: PANTOPRAZOLE SODIUM
     Route: 048
     Dates: start: 2016, end: 201702
  8. PANTOPRAZOLE SODIUM [Concomitant]
     Active Substance: PANTOPRAZOLE SODIUM
     Route: 048
     Dates: start: 201702
  9. ENTYVIO [Concomitant]
     Active Substance: VEDOLIZUMAB
     Indication: Colitis ulcerative
     Route: 041
     Dates: start: 20170726, end: 20180914
  10. CORTIMENT [Concomitant]
     Indication: Colitis ulcerative
     Route: 048
     Dates: start: 201706, end: 2018
  11. PREDNISONE [Concomitant]
     Active Substance: PREDNISONE
     Indication: Colitis ulcerative
     Route: 048
     Dates: start: 201804, end: 201808
  12. PREDNISONE [Concomitant]
     Active Substance: PREDNISONE
     Route: 048
     Dates: start: 201808, end: 201808
  13. PREDNISONE [Concomitant]
     Active Substance: PREDNISONE
     Route: 048
     Dates: start: 201808
  14. METOPROLOL [Concomitant]
     Active Substance: METOPROLOL
     Indication: Cardiac disorder
     Route: 048
     Dates: start: 2018, end: 201809
  15. METOPROLOL [Concomitant]
     Active Substance: METOPROLOL
     Indication: Cardiac disorder
     Route: 048
     Dates: start: 201809

REACTIONS (2)
  - Colon dysplasia [Recovered/Resolved]
  - Colitis ulcerative [Recovered/Resolved]

NARRATIVE: CASE EVENT DATE: 20180917
